FAERS Safety Report 6476623-5 (Version None)
Quarter: 2009Q4

REPORT INFORMATION
  Report Type: 
  Country: None (occurrence: None)
  Receive Date: 20091204
  Receipt Date: 20091204
  Transmission Date: 20100525
  Serious: Yes (Hospitalization)
  Sender: FDA-Public Use
  Company Number: None

PATIENT
  Sex: Female
  Weight: 117.9352 kg

DRUGS (8)
  1. CEFEPIME [Suspect]
     Indication: WOUND INFECTION
     Dosage: 2 GM BID IV
     Route: 042
     Dates: start: 20090904, end: 20091004
  2. CIPROFLOXACIN [Suspect]
     Indication: WOUND INFECTION
     Dosage: 500 MG BID PO
     Route: 048
     Dates: start: 20090904, end: 20091014
  3. LASIX [Concomitant]
  4. LISINOPRIL [Concomitant]
  5. LORTAB [Concomitant]
  6. IMDUR [Concomitant]
  7. EFFEXOR [Concomitant]
  8. K-DUR [Concomitant]

REACTIONS (3)
  - CLOSTRIDIUM DIFFICILE COLITIS [None]
  - DEHYDRATION [None]
  - HYPOKALAEMIA [None]
